FAERS Safety Report 14908314 (Version 1)
Quarter: 2018Q2

REPORT INFORMATION
  Report Type: Spontaneous
  Country: FR (occurrence: FR)
  Receive Date: 20180517
  Receipt Date: 20180517
  Transmission Date: 20180711
  Serious: Yes (Other)
  Sender: FDA-Public Use
  Company Number: FR-MERCK KGAA-2047992

PATIENT
  Age: 57 Year
  Sex: Female

DRUGS (1)
  1. NOVOTHYROX [Suspect]
     Active Substance: LEVOTHYROXINE SODIUM
     Indication: THYROIDECTOMY

REACTIONS (26)
  - Myalgia [Recovered/Resolved]
  - Stress [None]
  - Asthenia [Recovered/Resolved]
  - Alopecia [Recovered/Resolved]
  - Blood thyroid stimulating hormone decreased [Recovered/Resolved]
  - Fluid retention [None]
  - Abdominal pain upper [None]
  - Fatigue [Recovered/Resolved]
  - Loss of personal independence in daily activities [None]
  - Gait disturbance [None]
  - Decreased interest [None]
  - Oedema [Recovered/Resolved]
  - Personal relationship issue [None]
  - Endometrial cancer [None]
  - Loss of libido [None]
  - Dyspnoea [None]
  - Irritability [None]
  - Crying [None]
  - Feeling abnormal [None]
  - Blood cholesterol increased [None]
  - Weight increased [Not Recovered/Not Resolved]
  - Sleep disorder [Recovered/Resolved]
  - Arthralgia [Not Recovered/Not Resolved]
  - Agitation [None]
  - Dry mouth [Recovered/Resolved]
  - Malaise [None]

NARRATIVE: CASE EVENT DATE: 20170217
